FAERS Safety Report 20751335 (Version 1)
Quarter: 2022Q2

REPORT INFORMATION
  Report Type: Spontaneous
  Country: US (occurrence: US)
  Receive Date: 20220426
  Receipt Date: 20220426
  Transmission Date: 20220721
  Serious: No
  Sender: FDA-Public Use
  Company Number: US-PFIZER INC-2021387494

PATIENT
  Age: 73 Year
  Sex: Female
  Weight: 68.027 kg

DRUGS (2)
  1. GABAPENTIN [Suspect]
     Active Substance: GABAPENTIN
     Indication: Pain in jaw
     Dosage: 100 MG, 3X/DAY
     Dates: start: 20210402
  2. GABAPENTIN [Suspect]
     Active Substance: GABAPENTIN
     Indication: Nerve injury

REACTIONS (1)
  - Drug hypersensitivity [Unknown]
